FAERS Safety Report 19482938 (Version 1)
Quarter: 2021Q3

REPORT INFORMATION
  Report Type: Spontaneous
  Country: US (occurrence: US)
  Receive Date: 20210701
  Receipt Date: 20210701
  Transmission Date: 20211014
  Serious: No
  Sender: FDA-Public Use
  Company Number: US-KYOWAKIRIN-2021BKK011205

PATIENT

DRUGS (2)
  1. CRYSVITA [Suspect]
     Active Substance: BUROSUMAB-TWZA
     Indication: HEREDITARY HYPOPHOSPHATAEMIC RICKETS
     Dosage: COMBINATION OF TWO STRENGTHS (20 AND 30 MG/ML) FOR A TOTAL DOSE OF 50 MG
     Route: 058
     Dates: start: 20180627
  2. CRYSVITA [Suspect]
     Active Substance: BUROSUMAB-TWZA
     Indication: HEREDITARY HYPOPHOSPHATAEMIC RICKETS
     Dosage: COMBINATION OF TWO STRENGTHS (20 AND 30 MG/ML) FOR A TOTAL DOSE OF 50 MG
     Route: 058
     Dates: start: 20180627

REACTIONS (3)
  - Urinary tract infection [Unknown]
  - Paraesthesia [Unknown]
  - Carpal tunnel syndrome [Unknown]
